FAERS Safety Report 5384237-3 (Version None)
Quarter: 2007Q3

REPORT INFORMATION
  Report Type: 
  Country: None (occurrence: None)
  Receive Date: 20070703
  Receipt Date: 20060911
  Transmission Date: 20080115
  Serious: Yes (Other)
  Sender: FDA-Public Use
  Company Number: 2005-BP-12354BP

PATIENT
  Age: 51 Year
  Sex: Female

DRUGS (8)
  1. MIRAPEX [Suspect]
     Indication: RESTLESS LEGS SYNDROME
     Dosage: 3 MG (1 MG,1 MG TID),PO
     Route: 048
     Dates: start: 19990501, end: 20050623
  2. PRILOSEC [Concomitant]
  3. VICODIN [Concomitant]
  4. MENEST [Concomitant]
  5. EFFEXOR [Concomitant]
  6. VIOXX [Concomitant]
  7. NEURONTIN [Concomitant]
  8. TRAZODONE HCL [Concomitant]

REACTIONS (2)
  - GAMBLING [None]
  - OBSESSIVE-COMPULSIVE DISORDER [None]
